FAERS Safety Report 20598864 (Version 2)
Quarter: 2022Q2

REPORT INFORMATION
  Report Type: Spontaneous
  Country: FR (occurrence: FR)
  Receive Date: 20220315
  Receipt Date: 20220405
  Transmission Date: 20220721
  Serious: Yes (Other)
  Sender: FDA-Public Use
  Company Number: FR-BIOVITRUM-2022FR03526

PATIENT
  Sex: Female

DRUGS (7)
  1. KINERET [Suspect]
     Active Substance: ANAKINRA
     Indication: Still^s disease
     Dates: start: 201702, end: 201709
  2. KINERET [Suspect]
     Active Substance: ANAKINRA
     Dates: start: 201902
  3. KINERET [Suspect]
     Active Substance: ANAKINRA
  4. KINERET [Suspect]
     Active Substance: ANAKINRA
     Dates: start: 201907
  5. KINERET [Suspect]
     Active Substance: ANAKINRA
     Dates: start: 20210517
  6. KINERET [Suspect]
     Active Substance: ANAKINRA
     Dates: start: 202107
  7. CANAKINUMAB [Concomitant]
     Active Substance: CANAKINUMAB
     Dates: start: 202202

REACTIONS (4)
  - Still^s disease [Recovered/Resolved]
  - Condition aggravated [Recovered/Resolved]
  - Haemophagocytic lymphohistiocytosis [Recovered/Resolved]
  - Musculoskeletal pain [Recovered/Resolved]

NARRATIVE: CASE EVENT DATE: 20190201
